FAERS Safety Report 10065429 (Version 3)
Quarter: 2014Q2

REPORT INFORMATION
  Report Type: Report from Study
  Country: US (occurrence: US)
  Receive Date: 20140408
  Receipt Date: 20140415
  Transmission Date: 20141212
  Serious: Yes (Death, Hospitalization)
  Sender: FDA-Public Use
  Company Number: US-CELGENEUS-163-21880-13125317

PATIENT
  Age: 70 Year
  Sex: Female
  Weight: 83 kg

DRUGS (65)
  1. REVLIMID [Suspect]
     Indication: PLASMA CELL MYELOMA
     Dosage: 25 MILLIGRAM
     Route: 048
     Dates: start: 20131213
  2. REVLIMID [Suspect]
     Route: 048
     Dates: end: 20140221
  3. DEXAMETHASONE [Suspect]
     Indication: PLASMA CELL MYELOMA
     Route: 048
     Dates: start: 20131213
  4. DEXAMETHASONE [Suspect]
     Route: 048
     Dates: end: 20140221
  5. DEXAMETHASONE [Suspect]
     Route: 048
     Dates: start: 20140310, end: 20140310
  6. ELOTUZUMAB [Suspect]
     Indication: PLASMA CELL MYELOMA
     Route: 065
  7. ASPIRIN [Concomitant]
     Indication: PRODUCT USED FOR UNKNOWN INDICATION
     Route: 065
     Dates: start: 1973
  8. NEXIUM [Concomitant]
     Indication: PRODUCT USED FOR UNKNOWN INDICATION
     Route: 065
     Dates: start: 2003
  9. LASIX [Concomitant]
     Indication: PRODUCT USED FOR UNKNOWN INDICATION
     Route: 065
     Dates: start: 20131116
  10. LASIX [Concomitant]
     Route: 065
     Dates: start: 20140122, end: 20140122
  11. LOVASTATIN [Concomitant]
     Indication: PRODUCT USED FOR UNKNOWN INDICATION
     Route: 065
     Dates: start: 2003
  12. METAPROLOL [Concomitant]
     Indication: PRODUCT USED FOR UNKNOWN INDICATION
     Route: 065
     Dates: start: 2007
  13. PERCOCET [Concomitant]
     Indication: PRODUCT USED FOR UNKNOWN INDICATION
     Route: 065
     Dates: start: 20131116
  14. POTASSIUM CHLORIDE [Concomitant]
     Indication: ADVERSE EVENT
     Route: 065
     Dates: start: 20131116
  15. POTASSIUM CHLORIDE [Concomitant]
     Route: 065
     Dates: start: 20140121, end: 20140121
  16. POTASSIUM CHLORIDE [Concomitant]
     Route: 065
     Dates: start: 20140313, end: 20140314
  17. AMOXICILLIN [Concomitant]
     Indication: PRODUCT USED FOR UNKNOWN INDICATION
     Route: 065
     Dates: start: 20131209, end: 20131220
  18. ALBUTEROL [Concomitant]
     Indication: PRODUCT USED FOR UNKNOWN INDICATION
     Route: 065
     Dates: start: 20131209
  19. ALBUTEROL [Concomitant]
     Route: 065
     Dates: start: 20140226, end: 20140226
  20. PAMIDRONATE [Concomitant]
     Indication: PRODUCT USED FOR UNKNOWN INDICATION
     Route: 065
     Dates: start: 20131220
  21. DESITIN [Concomitant]
     Indication: PRODUCT USED FOR UNKNOWN INDICATION
     Route: 065
     Dates: start: 20131214
  22. PROMETHAZINE [Concomitant]
     Indication: PRODUCT USED FOR UNKNOWN INDICATION
     Route: 065
     Dates: start: 20131226, end: 20131229
  23. ENOXAPARIN [Concomitant]
     Indication: PRODUCT USED FOR UNKNOWN INDICATION
     Route: 065
     Dates: start: 20131227, end: 20131230
  24. ENOXAPARIN [Concomitant]
     Route: 065
     Dates: start: 20140227, end: 20140227
  25. PANTOPRAZOLE [Concomitant]
     Indication: PRODUCT USED FOR UNKNOWN INDICATION
     Route: 065
     Dates: start: 20131227, end: 20131230
  26. PANTOPRAZOLE [Concomitant]
     Route: 065
     Dates: start: 20140121, end: 20140122
  27. PANTOPRAZOLE [Concomitant]
     Route: 065
     Dates: start: 20140227, end: 20140313
  28. HYDRALAZINE [Concomitant]
     Indication: PRODUCT USED FOR UNKNOWN INDICATION
     Route: 065
     Dates: start: 20131230, end: 20131230
  29. BISACODYL [Concomitant]
     Indication: ADVERSE EVENT
     Route: 065
     Dates: start: 20131229, end: 20131229
  30. ACETAMINOPHEN [Concomitant]
     Indication: PRODUCT USED FOR UNKNOWN INDICATION
     Route: 065
     Dates: start: 20131230, end: 20131230
  31. ACETAMINOPHEN [Concomitant]
     Route: 065
     Dates: start: 20140203, end: 20140314
  32. DIPHENHYDRAMINE [Concomitant]
     Indication: PRODUCT USED FOR UNKNOWN INDICATION
     Route: 065
     Dates: start: 20131230, end: 20131230
  33. DIPHENHYDRAMINE [Concomitant]
     Route: 065
     Dates: start: 20140203, end: 20140302
  34. ONDANSETRON [Concomitant]
     Indication: ADVERSE EVENT
     Route: 065
     Dates: start: 20131227, end: 20131227
  35. ONDANSETRON [Concomitant]
     Route: 065
     Dates: start: 20140121, end: 20140121
  36. ONDANSETRON [Concomitant]
     Route: 065
     Dates: start: 20140301, end: 20140313
  37. MAGNESIUM HYDROXIDE [Concomitant]
     Indication: ADVERSE EVENT
     Route: 065
     Dates: start: 20131228, end: 20131228
  38. DOCUSATE [Concomitant]
     Indication: ADVERSE EVENT
     Route: 065
     Dates: start: 20131227, end: 20131229
  39. DOCUSATE [Concomitant]
     Route: 065
     Dates: start: 20140120, end: 20140122
  40. MAALOX [Concomitant]
     Indication: PRODUCT USED FOR UNKNOWN INDICATION
     Route: 065
     Dates: start: 20131228, end: 20131228
  41. HYDROCODONE-ACETAMINOPHEN [Concomitant]
     Indication: PRODUCT USED FOR UNKNOWN INDICATION
     Route: 065
     Dates: start: 20140120, end: 20140121
  42. HYDROCODONE-ACETAMINOPHEN [Concomitant]
     Route: 065
     Dates: start: 20140314, end: 20140314
  43. FAMOTIDINE [Concomitant]
     Indication: PRODUCT USED FOR UNKNOWN INDICATION
     Route: 065
     Dates: start: 20140120, end: 20140122
  44. NORMAL SALINE [Concomitant]
     Indication: DEHYDRATION
     Route: 065
     Dates: start: 20131226, end: 20131230
  45. NORMAL SALINE [Concomitant]
     Indication: PRODUCT USED FOR UNKNOWN INDICATION
     Route: 065
     Dates: start: 20140120, end: 20140122
  46. NORMAL SALINE [Concomitant]
     Route: 065
     Dates: start: 20140307, end: 20140309
  47. PACKED RED BLOOD CELLS [Concomitant]
     Indication: ANAEMIA
     Route: 065
     Dates: start: 20131230, end: 20131230
  48. PACKED RED BLOOD CELLS [Concomitant]
     Route: 065
     Dates: start: 20140120, end: 20140121
  49. ZOLEDRONIC ACID [Concomitant]
     Indication: PRODUCT USED FOR UNKNOWN INDICATION
     Route: 065
     Dates: start: 20140302, end: 20140302
  50. ZOLPIDEM [Concomitant]
     Indication: PRODUCT USED FOR UNKNOWN INDICATION
     Route: 065
     Dates: start: 20140304, end: 20140304
  51. SCOPOLAMINE [Concomitant]
     Indication: ADVERSE EVENT
     Route: 065
     Dates: start: 20140304, end: 20140307
  52. OLANZAPINE [Concomitant]
     Indication: PRODUCT USED FOR UNKNOWN INDICATION
     Route: 065
     Dates: start: 20140304, end: 20140313
  53. METOCLOPRAMIDE [Concomitant]
     Indication: ADVERSE EVENT
     Route: 065
     Dates: start: 20140304, end: 20140313
  54. NORMAL SALINE + SODIUM BICARBONATE [Concomitant]
     Indication: ADVERSE EVENT
     Dosage: 1/2 NS + 75 MEQ SODIUM BICARB.
     Route: 065
     Dates: start: 20140309, end: 20140313
  55. DARBEPOETIN [Concomitant]
     Indication: PRODUCT USED FOR UNKNOWN INDICATION
     Route: 065
     Dates: start: 20140310, end: 20140310
  56. ACYCLOVIR [Concomitant]
     Indication: PRODUCT USED FOR UNKNOWN INDICATION
     Route: 065
     Dates: start: 20140310, end: 20140313
  57. FLUCONAZOLE [Concomitant]
     Indication: ADVERSE EVENT
     Route: 065
     Dates: start: 20140312, end: 20140313
  58. CALCIUM GLUCONATE [Concomitant]
     Indication: ADVERSE EVENT
     Route: 065
     Dates: start: 20140312, end: 20140312
  59. DEXTROSE [Concomitant]
     Indication: PRODUCT USED FOR UNKNOWN INDICATION
     Route: 065
     Dates: start: 20140313, end: 20140315
  60. MORPHINE [Concomitant]
     Indication: PRODUCT USED FOR UNKNOWN INDICATION
     Route: 065
     Dates: start: 20140314, end: 20140315
  61. LORAZEPAM [Concomitant]
     Indication: PRODUCT USED FOR UNKNOWN INDICATION
     Route: 065
     Dates: start: 20140314, end: 20140315
  62. GLYCOPYROLATE [Concomitant]
     Indication: PRODUCT USED FOR UNKNOWN INDICATION
     Route: 065
     Dates: start: 20140314, end: 20140315
  63. BUMETANIDE [Concomitant]
     Indication: PRODUCT USED FOR UNKNOWN INDICATION
     Route: 065
     Dates: start: 20140314, end: 20140314
  64. ALBUMIN [Concomitant]
     Indication: ADVERSE EVENT
     Route: 065
     Dates: start: 20140314, end: 20140314
  65. SODIUM BICARBONATE [Concomitant]
     Indication: ADVERSE EVENT
     Route: 065
     Dates: start: 20140312, end: 20140313

REACTIONS (9)
  - Pneumonia [Fatal]
  - Renal failure acute [Fatal]
  - Clostridium difficile infection [Fatal]
  - Metabolic encephalopathy [Fatal]
  - Anaemia [Recovered/Resolved]
  - Dehydration [Recovered/Resolved]
  - Urinary tract infection [Recovered/Resolved]
  - Pneumonia [Recovered/Resolved]
  - Confusional state [Recovered/Resolved]
